FAERS Safety Report 21222538 (Version 1)
Quarter: 2022Q3

REPORT INFORMATION
  Report Type: Spontaneous
  Country: US (occurrence: US)
  Receive Date: 20220817
  Receipt Date: 20220817
  Transmission Date: 20221026
  Serious: No
  Sender: FDA-Public Use
  Company Number: US-SPECGX-T202201368

PATIENT
  Sex: Female

DRUGS (2)
  1. OXYCODONE [Suspect]
     Active Substance: OXYCODONE
     Indication: Pancreatitis acute
     Dosage: 10 MILLIGRAM, Q6H
     Route: 065
     Dates: start: 2022, end: 2022
  2. OXYCODONE [Suspect]
     Active Substance: OXYCODONE
     Indication: Abdominal pain

REACTIONS (4)
  - Malaise [Recovered/Resolved]
  - Feeling abnormal [Recovered/Resolved]
  - Withdrawal syndrome [Recovered/Resolved]
  - Drug ineffective [Unknown]
